FAERS Safety Report 23457914 (Version 1)
Quarter: 2024Q1

REPORT INFORMATION
  Report Type: Spontaneous
  Country: US (occurrence: US)
  Receive Date: 20240130
  Receipt Date: 20240130
  Transmission Date: 20240409
  Serious: No
  Sender: FDA-Public Use
  Company Number: US-002147023-NVSC2024US020444

PATIENT

DRUGS (1)
  1. LEQVIO [Suspect]
     Active Substance: INCLISIRAN SODIUM
     Indication: High density lipoprotein
     Dosage: UNK (284 MG/1.5 ML)
     Route: 048

REACTIONS (2)
  - Product storage error [Unknown]
  - Cardiac disorder [Unknown]
